FAERS Safety Report 23593396 (Version 1)
Quarter: 2024Q1

REPORT INFORMATION
  Report Type: Spontaneous
  Country: FR (occurrence: FR)
  Receive Date: 20240304
  Receipt Date: 20240304
  Transmission Date: 20240409
  Serious: Yes (Death, Hospitalization, Other)
  Sender: FDA-Public Use
  Company Number: FR-SANDOZ-SDZ2024FR018102

PATIENT
  Sex: Female

DRUGS (1)
  1. FENTANYL [Suspect]
     Active Substance: FENTANYL\FENTANYL CITRATE
     Indication: Pain
     Dosage: 12 MICROGRAM, QH (12 UG/HOUR)
     Route: 062
     Dates: start: 20240206

REACTIONS (3)
  - Death [Fatal]
  - Swelling face [Unknown]
  - Somnolence [Unknown]

NARRATIVE: CASE EVENT DATE: 20240211
